FAERS Safety Report 5988515-6 (Version None)
Quarter: 2008Q4

REPORT INFORMATION
  Report Type: 
  Country: None (occurrence: None)
  Receive Date: 20081210
  Receipt Date: 20081208
  Transmission Date: 20090506
  Serious: Yes (Hospitalization)
  Sender: FDA-Public Use
  Company Number: US-PURDUE-USA_2008_0034477

PATIENT
  Age: 59 Year
  Sex: Female
  Weight: 60 kg

DRUGS (9)
  1. SENOKOT [Suspect]
     Indication: CONSTIPATION
     Dosage: 2 TABLET, SEE TEXT
     Route: 048
     Dates: start: 20080605, end: 20080605
  2. ALPRAZOLAM [Concomitant]
  3. AMBIEN [Concomitant]
  4. COMPAZINE                          /00013302/ [Concomitant]
  5. IBUPROFEN TABLETS [Concomitant]
  6. ZOFRAN                             /00955302/ [Concomitant]
  7. LEXAPRO [Concomitant]
  8. ADVAIR HFA [Concomitant]
  9. PF-02341066 [Suspect]
     Indication: OVARIAN CANCER
     Dosage: 250 MG, BID
     Route: 048
     Dates: start: 20080529, end: 20080605

REACTIONS (4)
  - DEHYDRATION [None]
  - DIARRHOEA [None]
  - NAUSEA [None]
  - VOMITING [None]
